FAERS Safety Report 9989040 (Version 2)
Quarter: 2014Q1

REPORT INFORMATION
  Report Type: Spontaneous
  Country: PR (occurrence: PR)
  Receive Date: 20140310
  Receipt Date: 20140310
  Transmission Date: 20141002
  Serious: No
  Sender: FDA-Public Use
  Company Number: PR-ABBVIE-12P-131-1020229-00

PATIENT
  Age: 40 Year
  Sex: Female
  Weight: 81.72 kg

DRUGS (12)
  1. HUMIRA [Suspect]
     Indication: RHEUMATOID ARTHRITIS
     Route: 058
     Dates: start: 2010, end: 201212
  2. HUMIRA [Suspect]
     Route: 058
     Dates: start: 201212
  3. PLAQUENIL [Concomitant]
     Indication: RHEUMATOID ARTHRITIS
     Route: 048
     Dates: start: 2003
  4. ZOLOFT [Concomitant]
     Indication: DEPRESSION
     Dosage: IN THE MORNING
     Route: 048
     Dates: start: 201302
  5. NEURONTIN [Concomitant]
     Indication: RHEUMATOID ARTHRITIS
     Dosage: AT BEDTIME
     Route: 048
     Dates: start: 2005
  6. ULTRAM [Concomitant]
     Route: 048
     Dates: start: 2003
  7. PREDNISONE [Concomitant]
     Indication: RHEUMATOID ARTHRITIS
     Route: 048
     Dates: start: 2003
  8. METHOTREXATE [Concomitant]
     Indication: RHEUMATOID ARTHRITIS
     Route: 048
     Dates: start: 2003
  9. FOLIC ACID [Concomitant]
     Indication: SUPPLEMENTATION THERAPY
     Route: 048
     Dates: start: 2003
  10. TRANXENE [Concomitant]
     Indication: DEPRESSION
     Route: 048
     Dates: start: 2003
  11. ANAPROX [Concomitant]
     Indication: RHEUMATOID ARTHRITIS
     Route: 048
     Dates: start: 2003
  12. CALCIUM W/VITAMIN D PLUS [Concomitant]
     Indication: OSTEOPENIA
     Route: 048
     Dates: start: 201306

REACTIONS (3)
  - Osteopenia [Unknown]
  - Nasopharyngitis [Recovered/Resolved]
  - Bronchitis [Recovered/Resolved]
